FAERS Safety Report 25911161 (Version 2)
Quarter: 2025Q4

REPORT INFORMATION
  Report Type: Spontaneous
  Country: TR (occurrence: TR)
  Receive Date: 20251013
  Receipt Date: 20251211
  Transmission Date: 20260118
  Serious: Yes (Other)
  Sender: NOVARTIS
  Company Number: TR-002147023-NVSC2025TR154404

PATIENT
  Age: 28 Year
  Sex: Female

DRUGS (2)
  1. ILARIS [Suspect]
     Active Substance: CANAKINUMAB
     Indication: Familial mediterranean fever
     Dosage: UNK
     Route: 065
  2. COLCHICINE [Suspect]
     Active Substance: COLCHICINE
     Indication: Familial mediterranean fever
     Dosage: UNK
     Route: 065

REACTIONS (3)
  - Gestational diabetes [Unknown]
  - Maternal exposure during pregnancy [Unknown]
  - Normal newborn [Unknown]
